FAERS Safety Report 12282671 (Version 2)
Quarter: 2016Q2

REPORT INFORMATION
  Report Type: Spontaneous
  Country: US (occurrence: US)
  Receive Date: 20160419
  Receipt Date: 20160607
  Transmission Date: 20160815
  Serious: Yes (Hospitalization, Other)
  Sender: FDA-Public Use
  Company Number: US-BAYER-2016-072464

PATIENT
  Age: 33 Year
  Sex: Female

DRUGS (8)
  1. KEFLEX [Concomitant]
     Active Substance: CEPHALEXIN
     Dosage: 500 MG, UNK
  2. COLACE [Concomitant]
     Active Substance: DOCUSATE SODIUM
     Dosage: 100 MG, UNK
  3. MIRENA [Suspect]
     Active Substance: LEVONORGESTREL
     Indication: CONTRACEPTION
     Dosage: 20 MCG/24HR, CONT
     Route: 015
     Dates: start: 20060725, end: 20110922
  4. FERROUS SULFATE. [Concomitant]
     Active Substance: FERROUS SULFATE
     Dosage: 325 MG, UNK
  5. MOTRIN [Concomitant]
     Active Substance: IBUPROFEN
     Dosage: 800 MG, UNK
  6. PERCOCET [Concomitant]
     Active Substance: ACETAMINOPHEN\OXYCODONE HYDROCHLORIDE
     Dosage: 5 MG, UNK
  7. CELEXA [Concomitant]
     Active Substance: CITALOPRAM HYDROBROMIDE
     Indication: ANXIETY
     Dosage: 40 MG, QD
  8. PRENATAL VITAMINS [Concomitant]
     Active Substance: VITAMINS

REACTIONS (13)
  - Uterine perforation [None]
  - Genital haemorrhage [None]
  - Breast tenderness [None]
  - Abdominal pain lower [None]
  - Abdominal distension [None]
  - Premature rupture of membranes [None]
  - Haemorrhage in pregnancy [None]
  - Device difficult to use [None]
  - Nausea [None]
  - Pregnancy with contraceptive device [None]
  - Emotional distress [None]
  - Drug ineffective [None]
  - Abdominal pain [None]

NARRATIVE: CASE EVENT DATE: 20101119
